FAERS Safety Report 4404981-1 (Version None)
Quarter: 2004Q3

REPORT INFORMATION
  Report Type: 
  Country: None (occurrence: None)
  Receive Date: 20040722
  Receipt Date: 20040715
  Transmission Date: 20050211
  Serious: Yes (Life-Threatening, Disabling, Other)
  Sender: FDA-Public Use
  Company Number: GB-MERCK-0407GBR00167

PATIENT
  Sex: Male
  Weight: 90 kg

DRUGS (3)
  1. ACETAMINOPHEN [Concomitant]
     Route: 065
  2. VIOXX [Suspect]
     Indication: CHEST PAIN
     Route: 048
     Dates: start: 20031201, end: 20031210
  3. TRAMADOL HYDROCHLORIDE [Concomitant]
     Route: 065

REACTIONS (2)
  - NEPHRITIS INTERSTITIAL [None]
  - RENAL FAILURE CHRONIC [None]
